FAERS Safety Report 9100105 (Version 1)
Quarter: 2013Q1

REPORT INFORMATION
  Report Type: Spontaneous
  Country: FR (occurrence: FR)
  Receive Date: 20130215
  Receipt Date: 20130215
  Transmission Date: 20140127
  Serious: Yes (Other)
  Sender: FDA-Public Use
  Company Number: FR-ABBOTT-13P-056-1046125-00

PATIENT
  Age: 66 Year
  Sex: Male

DRUGS (5)
  1. SEVOFLURANE [Suspect]
     Indication: MAINTENANCE OF ANAESTHESIA
  2. PROPOFOL [Suspect]
     Indication: INDUCTION OF ANAESTHESIA
     Route: 042
  3. SUFENTANIL [Suspect]
     Indication: INDUCTION OF ANAESTHESIA
     Route: 042
  4. NITROUS OXIDE [Suspect]
     Indication: MAINTENANCE OF ANAESTHESIA
  5. OXYGEN [Suspect]
     Indication: MAINTENANCE OF ANAESTHESIA

REACTIONS (1)
  - VIIth nerve paralysis [Not Recovered/Not Resolved]
